FAERS Safety Report 13817711 (Version 1)
Quarter: 2017Q3

REPORT INFORMATION
  Report Type: Spontaneous
  Country: US (occurrence: US)
  Receive Date: 20170731
  Receipt Date: 20170731
  Transmission Date: 20171127
  Serious: No
  Sender: FDA-Public Use
  Company Number: US-BAYER-2017-144500

PATIENT
  Age: 89 Year
  Sex: Male
  Weight: 97.96 kg

DRUGS (1)
  1. LOTRIMIN ULTRA ANTIFUNGAL [Suspect]
     Active Substance: BUTENAFINE HYDROCHLORIDE
     Indication: TINEA INFECTION
     Dosage: 1 DF, ONCE
     Route: 061
     Dates: start: 20170601, end: 20170601

REACTIONS (2)
  - Product used for unknown indication [Unknown]
  - Burning sensation [Recovered/Resolved]

NARRATIVE: CASE EVENT DATE: 20170601
